FAERS Safety Report 13832550 (Version 1)
Quarter: 2017Q3

REPORT INFORMATION
  Report Type: Spontaneous
  Country: US (occurrence: US)
  Receive Date: 20170803
  Receipt Date: 20170803
  Transmission Date: 20171127
  Serious: No
  Sender: FDA-Public Use
  Company Number: US-ROCHE-1273843

PATIENT
  Sex: Female

DRUGS (1)
  1. BONIVA [Suspect]
     Active Substance: IBANDRONATE SODIUM
     Indication: BONE DISORDER
     Route: 065
     Dates: start: 1990, end: 201206

REACTIONS (4)
  - Odynophagia [Unknown]
  - Feeding disorder [Unknown]
  - Gastrointestinal disorder [Recovering/Resolving]
  - Oesophageal spasm [Unknown]
